FAERS Safety Report 12282696 (Version 4)
Quarter: 2018Q1

REPORT INFORMATION
  Report Type: Report from Study
  Country: JP (occurrence: JP)
  Receive Date: 20160419
  Receipt Date: 20180306
  Transmission Date: 20180508
  Serious: Yes (Death, Other)
  Sender: FDA-Public Use
  Company Number: JP-ASTELLAS-2016JP005824AA

PATIENT
  Age: 16 Year
  Sex: Male
  Weight: 39 kg

DRUGS (18)
  1. TACROLIMUS. [Suspect]
     Active Substance: TACROLIMUS
     Indication: PROPHYLAXIS AGAINST GRAFT VERSUS HOST DISEASE
     Dosage: 0.5 MG, TWICE DAILY
     Route: 048
     Dates: start: 20140401, end: 20140406
  2. SOLU-MEDROL [Concomitant]
     Active Substance: METHYLPREDNISOLONE SODIUM SUCCINATE
     Indication: PROPHYLAXIS AGAINST GRAFT VERSUS HOST DISEASE
     Route: 042
     Dates: start: 20140305, end: 20140401
  3. SOLU-MEDROL [Concomitant]
     Active Substance: METHYLPREDNISOLONE SODIUM SUCCINATE
     Route: 042
     Dates: start: 20140402
  4. METHOTREXATE. [Concomitant]
     Active Substance: METHOTREXATE
     Indication: PROPHYLAXIS AGAINST GRAFT VERSUS HOST DISEASE
     Dosage: 7-10MG/DAY, 4 TIMES IN TOTAL
     Route: 042
     Dates: start: 20140307, end: 20140317
  5. NOVOLIN R [Concomitant]
     Active Substance: INSULIN HUMAN
     Indication: HYPERGLYCAEMIA
     Dosage: 0.5 IU, ONCE DAILY
     Route: 065
     Dates: start: 20140303, end: 20140314
  6. SODIUM BICARBONATE. [Concomitant]
     Active Substance: SODIUM BICARBONATE
     Indication: PRODUCT USED FOR UNKNOWN INDICATION
     Dosage: UNK UNK, UNKNOWN FREQ.
     Route: 042
     Dates: start: 20140421
  7. TACROLIMUS. [Suspect]
     Active Substance: TACROLIMUS
     Indication: PROPHYLAXIS AGAINST GRAFT VERSUS HOST DISEASE
     Dosage: 0.6 MG, ONCE DAILY
     Route: 042
     Dates: start: 20140306, end: 20140401
  8. TACROLIMUS. [Suspect]
     Active Substance: TACROLIMUS
     Indication: GRAFT VERSUS HOST DISEASE
     Dosage: 0.4 MG, ONCE DAILY
     Route: 042
     Dates: start: 20140414, end: 20140415
  9. TACROLIMUS. [Suspect]
     Active Substance: TACROLIMUS
     Dosage: 0.7 MG, ONCE DAILY
     Route: 042
     Dates: start: 20140416, end: 20140420
  10. VICCLOX                            /00587301/ [Concomitant]
     Active Substance: ACYCLOVIR SODIUM
     Indication: ANTIVIRAL PROPHYLAXIS
     Route: 042
     Dates: start: 20140226, end: 20140401
  11. FUNGUARD [Concomitant]
     Active Substance: MICAFUNGIN SODIUM
     Indication: INFECTION PROPHYLAXIS
     Route: 042
     Dates: start: 20140307, end: 20140402
  12. TACROLIMUS. [Suspect]
     Active Substance: TACROLIMUS
     Indication: GRAFT VERSUS HOST DISEASE
     Dosage: 0.35 MG, TWICE DAILY
     Route: 048
     Dates: start: 20140407, end: 20140414
  13. VENOGLOBULIN [Concomitant]
     Active Substance: HUMAN IMMUNOGLOBULIN G
     Indication: INFECTION PROPHYLAXIS
     Route: 042
     Dates: start: 20140307, end: 2014
  14. MEROPEN                            /01250501/ [Concomitant]
     Active Substance: MEROPENEM
     Indication: INFECTION PROPHYLAXIS
     Route: 042
     Dates: start: 20140302, end: 20140315
  15. ZOSYN [Concomitant]
     Active Substance: PIPERACILLIN SODIUM\TAZOBACTAM SODIUM
     Indication: INFECTION PROPHYLAXIS
     Route: 042
     Dates: start: 20140316, end: 20140329
  16. NOVOLIN R [Concomitant]
     Active Substance: INSULIN HUMAN
     Dosage: 0.5 IU, ONCE DAILY
     Route: 065
     Dates: start: 20140411, end: 20140616
  17. FOSCAVIR [Concomitant]
     Active Substance: FOSCARNET SODIUM
     Indication: CYTOMEGALOVIRUS VIRAEMIA
     Route: 042
     Dates: start: 20140402, end: 20140422
  18. FLUDARABINE [Suspect]
     Active Substance: FLUDARABINE PHOSPHATE
     Indication: BONE MARROW CONDITIONING REGIMEN
     Dosage: UNK UNK, UNKNOWN FREQ.
     Route: 065

REACTIONS (3)
  - Acute kidney injury [Fatal]
  - Bacterial sepsis [Fatal]
  - Thrombotic microangiopathy [Fatal]

NARRATIVE: CASE EVENT DATE: 20140420
